FAERS Safety Report 10728850 (Version 1)
Quarter: 2015Q1

REPORT INFORMATION
  Report Type: Spontaneous
  Country: US (occurrence: None)
  Receive Date: 20150120
  Receipt Date: 20150120
  Transmission Date: 20150721
  Serious: Yes (Other)
  Sender: FDA-Public Use
  Company Number: None

PATIENT
  Age: 33 Year
  Sex: Female
  Weight: 70.31 kg

DRUGS (3)
  1. STRATTERA [Concomitant]
     Active Substance: ATOMOXETINE HYDROCHLORIDE
  2. ZOLOFT [Concomitant]
     Active Substance: SERTRALINE HYDROCHLORIDE
  3. LEVOFLOXACIN. [Suspect]
     Active Substance: LEVOFLOXACIN
     Indication: STAPHYLOCOCCAL INFECTION
     Dosage: 1 ONCE DAILY
     Route: 048
     Dates: start: 20150117, end: 20150118

REACTIONS (5)
  - Tendonitis [None]
  - Arthralgia [None]
  - Tinnitus [None]
  - Disturbance in attention [None]
  - Musculoskeletal pain [None]

NARRATIVE: CASE EVENT DATE: 20150119
